FAERS Safety Report 8136114-2 (Version None)
Quarter: 2012Q1

REPORT INFORMATION
  Report Type: 
  Country: None (occurrence: None)
  Receive Date: 20120214
  Receipt Date: 20120118
  Transmission Date: 20120608
  Serious: No
  Sender: FDA-Public Use
  Company Number: US-COVIDIEN/TYCO HEALTHCARE/MALLINCKRODT-T201102318

PATIENT
  Age: 37 Year
  Sex: Female
  Weight: 77.098 kg

DRUGS (10)
  1. MS CONTIN [Concomitant]
     Dosage: 30 MG, TID
     Route: 048
     Dates: end: 20110210
  2. ZANAFLEX [Concomitant]
     Indication: MUSCLE CONTRACTIONS INVOLUNTARY
     Dosage: 4 MG, TID PRN
  3. MS CONTIN [Concomitant]
     Dosage: 15 MG, TID
     Route: 048
     Dates: end: 20111023
  4. SOLU-MEDROL [Concomitant]
     Dosage: UNK
     Route: 042
     Dates: start: 20101101
  5. SEASONALE [Suspect]
     Indication: CONTRACEPTION
  6. SEASONALE [Suspect]
     Indication: DYSFUNCTIONAL UTERINE BLEEDING
  7. FENTANYL-100 [Suspect]
     Indication: PAIN
     Dosage: 75 UG/HR, Q72 HRS
     Route: 062
     Dates: start: 20111024
  8. KLONOPIN [Concomitant]
     Dosage: 1 MG, QID
     Route: 048
  9. DEMEROL [Concomitant]
     Dosage: 100 MG, QID
     Route: 048
     Dates: end: 20111023
  10. PROMETHAZINE [Concomitant]
     Dosage: 50 MG, QID
     Route: 048
     Dates: end: 20111023

REACTIONS (2)
  - DRUG EFFECT DECREASED [None]
  - PAIN [None]
